FAERS Safety Report 10881550 (Version 1)
Quarter: 2015Q1

REPORT INFORMATION
  Report Type: Spontaneous
  Country: US (occurrence: None)
  Receive Date: 20150225
  Receipt Date: 20150225
  Transmission Date: 20150721
  Serious: Yes (Hospitalization)
  Sender: FDA-Public Use
  Company Number: None

PATIENT
  Age: 63 Year
  Sex: Male
  Weight: 78 kg

DRUGS (1)
  1. RITUXIMAB (MOAB C2B8 ANTI  CD20, CHIMERIC) [Suspect]
     Active Substance: RITUXIMAB
     Dates: end: 20141210

REACTIONS (6)
  - Haemoptysis [None]
  - Fusobacterium test positive [None]
  - Bronchopulmonary aspergillosis [None]
  - Staphylococcus test positive [None]
  - Lung abscess [None]
  - Streptococcus test positive [None]

NARRATIVE: CASE EVENT DATE: 20150210
